FAERS Safety Report 7829342-4 (Version None)
Quarter: 2011Q4

REPORT INFORMATION
  Report Type: 
  Country: None (occurrence: None)
  Receive Date: 20111020
  Receipt Date: 20111011
  Transmission Date: 20120403
  Serious: Yes (Other)
  Sender: FDA-Public Use
  Company Number: BR-B.I. PHARMACEUTICALS,INC./RIDGEFIELD-2011-DE-05722GD

PATIENT
  Age: 38 Year
  Sex: Female

DRUGS (2)
  1. PRAMIPEXOLE DIHYDROCHLORIDE [Suspect]
     Indication: PARKINSON'S DISEASE
     Dosage: 0.375 MG
  2. CARBIDOPA + LEVODOPA [Concomitant]
     Indication: PARKINSON'S DISEASE
     Dosage: STRENGTH: L-DOPA/CARBIDOPA 125 MG/12.5 MG, DAILY DOSE: L-DOPA/CARBIDOPA 500 MG/50 MG

REACTIONS (7)
  - PANIC ATTACK [None]
  - DYSPNOEA [None]
  - CHILLS [None]
  - DIZZINESS [None]
  - FEAR OF DEATH [None]
  - PALPITATIONS [None]
  - PARAESTHESIA [None]
